FAERS Safety Report 12220433 (Version 3)
Quarter: 2016Q3

REPORT INFORMATION
  Report Type: Report from Study
  Country: US (occurrence: US)
  Receive Date: 20160330
  Receipt Date: 20160831
  Transmission Date: 20161109
  Serious: Yes (Death, Hospitalization)
  Sender: FDA-Public Use
  Company Number: US-ROCHE-1733543

PATIENT
  Age: 52 Year
  Sex: Male

DRUGS (16)
  1. GABAPENTIN. [Concomitant]
     Active Substance: GABAPENTIN
  2. AMBIEN [Concomitant]
     Active Substance: ZOLPIDEM TARTRATE
  3. LASIX [Concomitant]
     Active Substance: FUROSEMIDE
  4. DULOXETINE. [Concomitant]
     Active Substance: DULOXETINE
  5. PROTONIX (OMEPRAZOLE) [Concomitant]
  6. ESBRIET [Suspect]
     Active Substance: PIRFENIDONE
     Indication: IDIOPATHIC PULMONARY FIBROSIS
     Route: 048
     Dates: start: 20150422
  7. LOSARTAN. [Concomitant]
     Active Substance: LOSARTAN
  8. LATANOPROST. [Concomitant]
     Active Substance: LATANOPROST
  9. SYMBICORT [Concomitant]
     Active Substance: BUDESONIDE\FORMOTEROL FUMARATE DIHYDRATE
  10. SUCRALFATE. [Concomitant]
     Active Substance: SUCRALFATE
  11. BACTRIM [Suspect]
     Active Substance: SULFAMETHOXAZOLE\TRIMETHOPRIM
     Indication: PRODUCT USED FOR UNKNOWN INDICATION
     Route: 065
  12. ZETIA [Concomitant]
     Active Substance: EZETIMIBE
  13. ATORVASTATIN [Concomitant]
     Active Substance: ATORVASTATIN
  14. AMLODIPINE [Concomitant]
     Active Substance: AMLODIPINE BESYLATE
  15. BENZONATATE. [Concomitant]
     Active Substance: BENZONATATE
  16. METOPROLOL. [Concomitant]
     Active Substance: METOPROLOL

REACTIONS (3)
  - Death [Fatal]
  - Drug hypersensitivity [Unknown]
  - Dyspnoea [Unknown]

NARRATIVE: CASE EVENT DATE: 20160622
